FAERS Safety Report 4501008-8 (Version None)
Quarter: 2004Q4

REPORT INFORMATION
  Report Type: 
  Country: None (occurrence: None)
  Receive Date: 20041115
  Receipt Date: 20041103
  Transmission Date: 20050328
  Serious: Yes (Hospitalization)
  Sender: FDA-Public Use
  Company Number: GB-GLAXOSMITHKLINE-B0350447A

PATIENT
  Age: 74 Year
  Sex: Male

DRUGS (10)
  1. AMOXICILLIN [Suspect]
     Indication: PROPHYLAXIS
     Route: 065
     Dates: start: 20040915
  2. REISHI [Suspect]
     Dosage: 3CAP THREE TIMES PER DAY
     Route: 048
     Dates: start: 20040712
  3. SKULLCAP [Suspect]
     Dosage: 3CAP THREE TIMES PER DAY
     Route: 048
     Dates: start: 20040712
  4. CHRYSANTHEMUM [Suspect]
     Dosage: 3CAP THREE TIMES PER DAY
     Route: 048
     Dates: start: 20040712
  5. SAW PALMETTO [Suspect]
     Dosage: 3CAP THREE TIMES PER DAY
     Route: 048
     Dates: start: 20040712
  6. LICORICE ROOT [Suspect]
     Dosage: 3CAP THREE TIMES PER DAY
     Route: 048
     Dates: start: 20040712
  7. GANODERMA LUCIDUM [Suspect]
     Dosage: 3CAP THREE TIMES PER DAY
     Route: 048
     Dates: start: 20040712
  8. DIHYDROCODEINE [Suspect]
     Indication: PAIN
     Dosage: 30MG THREE TIMES PER DAY
     Route: 065
     Dates: start: 20040915
  9. GINSENG [Suspect]
     Dosage: 3CAP THREE TIMES PER DAY
     Route: 048
     Dates: start: 20040712
  10. HERBAL MEDICINE [Suspect]

REACTIONS (1)
  - FALL [None]
